FAERS Safety Report 12671464 (Version 1)
Quarter: 2016Q3

REPORT INFORMATION
  Report Type: Report from Study
  Country: AU (occurrence: AU)
  Receive Date: 20160822
  Receipt Date: 20160822
  Transmission Date: 20161109
  Serious: Yes (Other)
  Sender: FDA-Public Use
  Company Number: PHHY2016AU101930

PATIENT
  Age: 76 Year
  Sex: Female

DRUGS (1)
  1. SANDOSTATIN LAR DEPOT [Suspect]
     Active Substance: OCTREOTIDE ACETATE
     Indication: CARCINOID SYNDROME
     Dosage: 30 MG, UNK
     Route: 030

REACTIONS (6)
  - Fall [Unknown]
  - Diarrhoea [Unknown]
  - Pain [Unknown]
  - Vomiting [Unknown]
  - Wrist fracture [Unknown]
  - Constipation [Unknown]

NARRATIVE: CASE EVENT DATE: 20160620
